FAERS Safety Report 9601650 (Version 1)
Quarter: 2013Q4

REPORT INFORMATION
  Report Type: Report from Study
  Country: JP (occurrence: JP)
  Receive Date: 20131007
  Receipt Date: 20131007
  Transmission Date: 20140711
  Serious: Yes (Death)
  Sender: FDA-Public Use
  Company Number: JP-ROCHE-1282755

PATIENT
  Age: 57 Year
  Sex: Male

DRUGS (8)
  1. RITUXIMAB [Suspect]
     Indication: B-CELL LYMPHOMA
     Route: 042
     Dates: start: 20090303, end: 20090310
  2. RITUXIMAB [Suspect]
     Route: 042
     Dates: start: 20090402
  3. FLUDARABINE [Suspect]
     Indication: B-CELL LYMPHOMA
     Route: 065
     Dates: start: 20090402
  4. IBRITUMOMAB TIUXETAN/INDIUM-111 [Suspect]
     Indication: B-CELL LYMPHOMA
     Route: 042
     Dates: start: 20090303, end: 20090303
  5. IBRITUMOMAB TIUXETAN [Suspect]
     Indication: B-CELL LYMPHOMA
     Route: 042
     Dates: start: 20090310, end: 20090310
  6. ACETAMINOPHEN [Concomitant]
     Indication: PREMEDICATION
     Dosage: DAILY
     Route: 048
     Dates: start: 20090303, end: 20090310
  7. DEXCHLORPHENIRAMINE MALEATE [Concomitant]
     Indication: PREMEDICATION
     Dosage: DAILY
     Route: 048
     Dates: start: 20090303, end: 20090310
  8. DEXAMETHASONE SODIUM PHOSPHATE [Concomitant]
     Indication: PREMEDICATION
     Dosage: DAILY
     Route: 042
     Dates: start: 20090303, end: 20090310

REACTIONS (5)
  - Myelodysplastic syndrome [Fatal]
  - Blood lactate dehydrogenase increased [Not Recovered/Not Resolved]
  - Lymphocyte count decreased [Recovered/Resolved]
  - Neutrophil count decreased [Recovered/Resolved]
  - White blood cell count decreased [Recovered/Resolved]
